FAERS Safety Report 15075982 (Version 2)
Quarter: 2018Q3

REPORT INFORMATION
  Report Type: Spontaneous
  Country: US (occurrence: US)
  Receive Date: 20180627
  Receipt Date: 20180917
  Transmission Date: 20181010
  Serious: Yes (Other)
  Sender: FDA-Public Use
  Company Number: US-SA-2018SA168129

PATIENT
  Age: 60 Year
  Sex: Female
  Weight: 100 kg

DRUGS (7)
  1. TAXOTERE [Suspect]
     Active Substance: DOCETAXEL
     Indication: BREAST CANCER
     Dosage: UNK, UNK
     Route: 065
     Dates: start: 20071121, end: 20071121
  2. METFORMIN [Concomitant]
     Active Substance: METFORMIN HYDROCHLORIDE
     Dosage: UNK
     Dates: start: 200301
  3. TAXOTERE [Suspect]
     Active Substance: DOCETAXEL
     Dosage: 150 UNK
     Route: 042
     Dates: start: 20080306, end: 20080306
  4. HERCEPTIN [Concomitant]
     Active Substance: TRASTUZUMAB
  5. LOTREL [LOTEPREDNOL ETABONATE] [Concomitant]
     Dosage: UNK
     Dates: start: 199210
  6. HCTZ [Concomitant]
     Active Substance: HYDROCHLOROTHIAZIDE
     Dosage: UNK
     Dates: start: 199210
  7. PARAPLATIN [Concomitant]
     Active Substance: CARBOPLATIN

REACTIONS (2)
  - Alopecia [Recovering/Resolving]
  - Psychological trauma [Unknown]

NARRATIVE: CASE EVENT DATE: 200711
